FAERS Safety Report 4365348-8 (Version None)
Quarter: 2004Q2

REPORT INFORMATION
  Report Type: 
  Country: None (occurrence: None)
  Receive Date: 20040520
  Receipt Date: 20040512
  Transmission Date: 20050107
  Serious: Yes (Death, Life-Threatening)
  Sender: FDA-Public Use
  Company Number: 04SPA0055

PATIENT
  Sex: Male

DRUGS (8)
  1. AGGRASTAT [Suspect]
     Indication: ANGINA PECTORIS
     Dosage: 0.4 MICROGRAMS/KG/MIN/X1
  2. AGGRASTAT [Suspect]
     Indication: ELECTROCARDIOGRAM ST SEGMENT ELEVATION
     Dosage: 0.4 MICROGRAMS/KG/MIN/X1
  3. ENOXAPARIN SODIUM [Suspect]
     Dosage: 60 MG/Q 12 HR
  4. TENECTEPLASE [Suspect]
     Dosage: 6000 IU/X1
  5. ABCIXIMAB [Suspect]
     Dosage: 10 MICROGRAMS/
  6. CLOPIDOGREL BISULFATE [Suspect]
  7. NITROGLYCERIN [Suspect]
  8. ASPIRIN [Concomitant]

REACTIONS (4)
  - CARDIAC FAILURE [None]
  - CORONARY ARTERY THROMBOSIS [None]
  - LUNG INFILTRATION [None]
  - PULMONARY HAEMORRHAGE [None]
